FAERS Safety Report 19198798 (Version 2)
Quarter: 2023Q2

REPORT INFORMATION
  Report Type: Other
  Country: US (occurrence: None)
  Receive Date: 20210429
  Receipt Date: 20230412
  Transmission Date: 20230722
  Serious: Yes (Death)
  Sender: FDA-Public Use
  Company Number: US-ROCHE-2634934

PATIENT
  Age: 86 Year
  Sex: Male

DRUGS (1)
  1. KADCYLA [Suspect]
     Active Substance: ADO-TRASTUZUMAB EMTANSINE
     Indication: Lung neoplasm malignant
     Dosage: INFUSE 300MG INTRAVENOUSLY EVERY 21 DAY(S) FOR 6 CYCLES
     Route: 042

REACTIONS (2)
  - Death [Fatal]
  - Off label use [Unknown]

NARRATIVE: CASE EVENT DATE: 20210924
